FAERS Safety Report 7551202-7 (Version None)
Quarter: 2011Q2

REPORT INFORMATION
  Report Type: 
  Country: None (occurrence: None)
  Receive Date: 20110616
  Receipt Date: 20110603
  Transmission Date: 20111010
  Serious: Yes (Other)
  Sender: FDA-Public Use
  Company Number: PHHY2011GR49497

PATIENT
  Age: 50 Year
  Sex: Female

DRUGS (1)
  1. SANDIMMUNE [Suspect]
     Indication: PSORIASIS
     Dosage: 2.5 MG/KG

REACTIONS (1)
  - BLOOD CREATINE PHOSPHOKINASE INCREASED [None]
